FAERS Safety Report 13230109 (Version 1)
Quarter: 2017Q1

REPORT INFORMATION
  Report Type: Spontaneous
  Country: US (occurrence: US)
  Receive Date: 20170214
  Receipt Date: 20170214
  Transmission Date: 20170428
  Serious: No
  Sender: FDA-Public Use
  Company Number: US-B.I. PHARMACEUTICALS,INC./RIDGEFIELD-2017-BI-007877

PATIENT
  Age: 71 Year
  Sex: Male

DRUGS (1)
  1. OFEV [Suspect]
     Active Substance: NINTEDANIB
     Indication: IDIOPATHIC PULMONARY FIBROSIS
     Dosage: ONE CAPSULE TWICE A DAY;  FORM STRENGTH: 150 MG; FORMULATION: CAPSULE? ADMINISTRATION CORRECT? NR(NO
     Route: 048

REACTIONS (9)
  - Hypertension [Unknown]
  - Hypoxia [Unknown]
  - Tachycardia [Unknown]
  - Decreased appetite [Unknown]
  - Abnormal loss of weight [Unknown]
  - Cough [Unknown]
  - Dyspnoea [Unknown]
  - Pulmonary mass [Unknown]
  - Oxygen supplementation [Unknown]

NARRATIVE: CASE EVENT DATE: 20170112
